FAERS Safety Report 4610786-9 (Version None)
Quarter: 2005Q2

REPORT INFORMATION
  Report Type: 
  Country: None (occurrence: None)
  Receive Date: 20050223
  Receipt Date: 20040130
  Transmission Date: 20051028
  Serious: Yes (Other)
  Sender: FDA-Public Use
  Company Number: WAES0312USA01813

PATIENT
  Age: 58 Year
  Sex: Male
  Weight: 104.3273 kg

DRUGS (7)
  1. ZOCOR [Suspect]
     Indication: HYPERCHOLESTEROLAEMIA
     Dosage: DAILY/ PO; 80 MG
     Route: 048
     Dates: end: 20031101
  2. ZOCOR [Suspect]
     Indication: HYPERLIPIDAEMIA
     Dosage: DAILY/ PO; 80 MG
     Route: 048
     Dates: end: 20031101
  3. ZOCOR [Suspect]
     Indication: HYPERCHOLESTEROLAEMIA
     Dosage: DAILY/ PO; 80 MG
     Route: 048
     Dates: start: 20010101
  4. ZOCOR [Suspect]
     Indication: HYPERLIPIDAEMIA
     Dosage: DAILY/ PO; 80 MG
     Route: 048
     Dates: start: 20010101
  5. CELEBREX [Concomitant]
  6. PRINIVIL [Concomitant]
  7. . [Concomitant]

REACTIONS (1)
  - RHABDOMYOLYSIS [None]
